FAERS Safety Report 6294963-X (Version None)
Quarter: 2009Q3

REPORT INFORMATION
  Report Type: 
  Country: None (occurrence: None)
  Receive Date: 20090731
  Receipt Date: 20090731
  Transmission Date: 20100115
  Serious: Yes (Hospitalization)
  Sender: FDA-Public Use
  Company Number: None

PATIENT
  Age: 63 Year
  Sex: Female
  Weight: 83.9154 kg

DRUGS (2)
  1. LIPITOR [Suspect]
     Indication: MYOCARDIAL INFARCTION
     Dosage: 80 MG DAILY PO
     Route: 048
     Dates: start: 20090519, end: 20090603
  2. LISINOPRIL [Suspect]
     Indication: MYOCARDIAL INFARCTION
     Dosage: 2.5 DAILY PO
     Route: 048
     Dates: start: 20090519, end: 20090728

REACTIONS (4)
  - DYSPNOEA [None]
  - HYPERKALAEMIA [None]
  - PAIN IN EXTREMITY [None]
  - SYNCOPE [None]
